FAERS Safety Report 19401140 (Version 4)
Quarter: 2021Q2

REPORT INFORMATION
  Report Type: Report from Study
  Country: US (occurrence: US)
  Receive Date: 20210610
  Receipt Date: 20210630
  Transmission Date: 20210717
  Serious: Yes (Hospitalization)
  Sender: FDA-Public Use
  Company Number: US-EISAI MEDICAL RESEARCH-EC-2021-094135

PATIENT
  Age: 68 Year
  Sex: Male
  Weight: 70.8 kg

DRUGS (11)
  1. MELATONIN [Concomitant]
     Active Substance: MELATONIN
     Dates: start: 200101
  2. MORPHINE [Concomitant]
     Active Substance: MORPHINE
     Dates: start: 20201208
  3. PEMBROLIZUMAB. [Suspect]
     Active Substance: PEMBROLIZUMAB
     Indication: NON-SMALL CELL LUNG CANCER
     Route: 041
     Dates: start: 20210514, end: 20210514
  4. AMARYL [Concomitant]
     Active Substance: GLIMEPIRIDE
     Dates: start: 20191112
  5. PLAVIX [Concomitant]
     Active Substance: CLOPIDOGREL BISULFATE
     Dates: start: 20191112
  6. MEGESTROL ACETATE. [Concomitant]
     Active Substance: MEGESTROL ACETATE
     Dates: start: 20210426
  7. LENVATINIB [Suspect]
     Active Substance: LENVATINIB
     Route: 048
     Dates: start: 20210602
  8. PRINIVIL [Concomitant]
     Active Substance: LISINOPRIL
     Dates: start: 20210521, end: 20210521
  9. LENVATINIB [Suspect]
     Active Substance: LENVATINIB
     Indication: NON-SMALL CELL LUNG CANCER
     Route: 048
     Dates: start: 20210514, end: 20210528
  10. ASPIRINE [Concomitant]
     Active Substance: ASPIRIN
     Dates: start: 201001
  11. PRILOSEC [Concomitant]
     Active Substance: OMEPRAZOLE MAGNESIUM
     Dates: start: 20210517, end: 20210521

REACTIONS (1)
  - Tumour pain [Recovered/Resolved]

NARRATIVE: CASE EVENT DATE: 20210529
